FAERS Safety Report 7744458-9 (Version None)
Quarter: 2011Q3

REPORT INFORMATION
  Report Type: 
  Country: None (occurrence: None)
  Receive Date: 20110912
  Receipt Date: 20110831
  Transmission Date: 20111222
  Serious: Yes (Hospitalization)
  Sender: FDA-Public Use
  Company Number: US-UCBSA-040580

PATIENT
  Sex: Female
  Weight: 55 kg

DRUGS (15)
  1. VITAMIN B-12 [Concomitant]
     Route: 048
     Dates: start: 20100901
  2. PROTONIX [Concomitant]
  3. TYLENOL-500 [Concomitant]
  4. M.V.I. [Concomitant]
     Dosage: 2 TABLETS
     Route: 048
     Dates: start: 20110701
  5. FERROL [Concomitant]
     Dosage: LIQUID, TWO TABLE SPOONS AS NECESSARY
     Route: 048
  6. COD LIVER OIL [Concomitant]
     Route: 048
     Dates: start: 20100901
  7. CIMZIA [Suspect]
     Indication: CROHN'S DISEASE
     Route: 058
     Dates: start: 20101012
  8. ASCORBIC ACID [Concomitant]
     Route: 048
     Dates: start: 20100901
  9. OMEPRAZOLE [Concomitant]
     Indication: GASTROOESOPHAGEAL REFLUX DISEASE
     Dosage: 20 MG
     Route: 048
     Dates: start: 20010101
  10. LOVENOX [Concomitant]
  11. AVELOX [Concomitant]
  12. MERCAPTOPURINE [Concomitant]
     Dates: start: 20001121
  13. PURINETHOL [Concomitant]
  14. ZOFRAN [Concomitant]
  15. AMBIEN [Concomitant]

REACTIONS (1)
  - PNEUMONIA [None]
